FAERS Safety Report 6510211-7 (Version None)
Quarter: 2009Q4

REPORT INFORMATION
  Report Type: 
  Country: None (occurrence: None)
  Receive Date: 20091217
  Receipt Date: 20091202
  Transmission Date: 20100525
  Serious: Yes (Other)
  Sender: FDA-Public Use
  Company Number: 003003

PATIENT
  Age: 47 Year
  Sex: Female

DRUGS (3)
  1. PREDNISOLONE [Suspect]
     Indication: LUPUS PNEUMONITIS
     Dates: start: 19980101, end: 20050101
  2. AZATHIOPRINE [Suspect]
     Indication: LUPUS PNEUMONITIS
     Dosage: (150 MG QD)
     Dates: start: 19980101
  3. CYCLOSPORIN (CYCLOSPORIN) (NOT SPECIFIED) [Suspect]
     Indication: LUPUS PNEUMONITIS
     Dates: start: 19980101, end: 20050101

REACTIONS (1)
  - EPSTEIN-BARR VIRUS INFECTION [None]
